FAERS Safety Report 13163570 (Version 1)
Quarter: 2017Q1

REPORT INFORMATION
  Report Type: Report from Study
  Country: US (occurrence: US)
  Receive Date: 20170130
  Receipt Date: 20170130
  Transmission Date: 20170428
  Serious: Yes (Other)
  Sender: FDA-Public Use
  Company Number: US-PFIZER INC-2015277850

PATIENT
  Age: 56 Year
  Sex: Female

DRUGS (3)
  1. IBRANCE [Suspect]
     Active Substance: PALBOCICLIB
     Dosage: 100 MG, 1X/DAY
     Route: 048
     Dates: start: 2016
  2. AROMASIN [Suspect]
     Active Substance: EXEMESTANE
     Dosage: UNK
  3. IBRANCE [Suspect]
     Active Substance: PALBOCICLIB
     Indication: BREAST CANCER
     Dosage: 125 MG, 1X/DAY
     Route: 048
     Dates: start: 201509, end: 2016

REACTIONS (8)
  - Rectal haemorrhage [Unknown]
  - White blood cell count decreased [Unknown]
  - Abdominal distension [Unknown]
  - Fatigue [Unknown]
  - Alopecia [Unknown]
  - Haemorrhoids [Unknown]
  - Constipation [Unknown]
  - Neuropathy peripheral [Unknown]
